FAERS Safety Report 14623997 (Version 3)
Quarter: 2019Q3

REPORT INFORMATION
  Report Type: Report from Study
  Country: US (occurrence: US)
  Receive Date: 20180312
  Receipt Date: 20190806
  Transmission Date: 20191004
  Serious: Yes (Life-Threatening, Other)
  Sender: FDA-Public Use
  Company Number: US-AMGEN-USASL2018031535

PATIENT
  Sex: Male

DRUGS (1)
  1. ENBREL [Suspect]
     Active Substance: ETANERCEPT
     Indication: RHEUMATOID ARTHRITIS
     Dosage: UNK
     Route: 065

REACTIONS (4)
  - Medical device implantation [Unknown]
  - Cardiac operation [Unknown]
  - Coma [Recovered/Resolved]
  - Cardiac valve disease [Unknown]

NARRATIVE: CASE EVENT DATE: 2017
